FAERS Safety Report 17966604 (Version 7)
Quarter: 2021Q1

REPORT INFORMATION
  Report Type: Spontaneous
  Country: CA (occurrence: CA)
  Receive Date: 20200701
  Receipt Date: 20210329
  Transmission Date: 20210419
  Serious: Yes (Other)
  Sender: FDA-Public Use
  Company Number: CA-CELLTRION INC.-2019CA025253

PATIENT

DRUGS (11)
  1. INFLECTRA [Suspect]
     Active Substance: INFLIXIMAB-DYYB
     Dosage: 10 MG/KG (900 MG EVERY 8 WEEKS)
     Route: 042
     Dates: start: 20210310
  2. INFLECTRA [Suspect]
     Active Substance: INFLIXIMAB-DYYB
     Dosage: 10 MG/KG (900 MG EVERY 6 WEEKS)/UNKNOWN (INFLECTRA SWITCH IN UK)
     Route: 042
     Dates: start: 20200717, end: 20200717
  3. INFLECTRA [Suspect]
     Active Substance: INFLIXIMAB-DYYB
     Dosage: 10 MG/KG, 900 MG, EVERY 6 WEEKS
     Route: 042
     Dates: start: 20191105
  4. PREDNISONE. [Concomitant]
     Active Substance: PREDNISONE
     Dosage: 50 MG
  5. INFLECTRA [Suspect]
     Active Substance: INFLIXIMAB-DYYB
     Dosage: 10 MG/KG (900 MG EVERY 6 WEEKS)
     Route: 042
     Dates: start: 20200602
  6. INFLECTRA [Suspect]
     Active Substance: INFLIXIMAB-DYYB
     Dosage: 10 MG/KG (900 MG EVERY 8 WEEKS)
     Route: 042
     Dates: start: 20201117
  7. INFLECTRA [Suspect]
     Active Substance: INFLIXIMAB-DYYB
     Dosage: 10 MG/KG (900 MG EVERY 8 WEEKS)
     Route: 042
     Dates: start: 20210114
  8. PREDNISONE. [Concomitant]
     Active Substance: PREDNISONE
     Dosage: 50 MG, UNK
     Route: 048
  9. INFLECTRA [Suspect]
     Active Substance: INFLIXIMAB-DYYB
     Indication: COLITIS ULCERATIVE
     Dosage: 10 MG/KG, 900 MG, EVERY 6 WEEKS
     Route: 042
     Dates: start: 20190923
  10. INFLECTRA [Suspect]
     Active Substance: INFLIXIMAB-DYYB
     Dosage: 10 MG/KG, 900 MG, EVERY 6 WEEKS
     Route: 042
     Dates: start: 20191218
  11. INFLECTRA [Suspect]
     Active Substance: INFLIXIMAB-DYYB
     Dosage: 10 MG/KG (900 MG EVERY 8 WEEKS)
     Route: 042
     Dates: start: 20200917

REACTIONS (9)
  - Condition aggravated [Not Recovered/Not Resolved]
  - Lipase increased [Unknown]
  - Off label use [Unknown]
  - Dermatitis psoriasiform [Unknown]
  - Drug level above therapeutic [Unknown]
  - Seasonal allergy [Unknown]
  - Off label use [Unknown]
  - Heart rate decreased [Unknown]
  - Intentional product use issue [Unknown]

NARRATIVE: CASE EVENT DATE: 20190923
